FAERS Safety Report 16093973 (Version 1)
Quarter: 2019Q1

REPORT INFORMATION
  Report Type: Report from Study
  Country: US (occurrence: US)
  Receive Date: 20190320
  Receipt Date: 20190320
  Transmission Date: 20190418
  Serious: Yes (Death)
  Sender: FDA-Public Use
  Company Number: US-ROCHE-2284427

PATIENT
  Sex: Female

DRUGS (22)
  1. ERIVEDGE [Suspect]
     Active Substance: VISMODEGIB
     Indication: MALIGNANT NEOPLASM OF AMPULLA OF VATER
     Dosage: TAKE 1 CAPSULE BY MOUTH EVERY DAY
     Route: 048
  2. ZOFRAN [Concomitant]
     Active Substance: ONDANSETRON HYDROCHLORIDE
     Indication: NAUSEA
     Dosage: AS NEEDED
     Route: 048
  3. CREON [Concomitant]
     Active Substance: PANCRELIPASE AMYLASE\PANCRELIPASE LIPASE\PANCRELIPASE PROTEASE
     Dosage: WITH MEALS AND NIGHTLY
     Route: 065
  4. SYSTANE (HYPROMELLOSE 2910 (4000 MPA.S)) [Concomitant]
     Active Substance: HYPROMELLOSE 2910 (4000 MPA.S)
     Route: 047
  5. ZYRTEC [Concomitant]
     Active Substance: CETIRIZINE HYDROCHLORIDE
     Dosage: AS NEEDED
     Route: 048
  6. MONUROL [Concomitant]
     Active Substance: FOSFOMYCIN TROMETHAMINE
     Dosage: 1 PACKET EVERY 48 HRS
     Route: 048
  7. LASIX [Concomitant]
     Active Substance: FUROSEMIDE
     Route: 048
  8. POTASSIUM CHLORIDE. [Concomitant]
     Active Substance: POTASSIUM CHLORIDE
     Route: 048
  9. XALATAN [Concomitant]
     Active Substance: LATANOPROST
     Dosage: 1 DROP AT BEDTIME
     Route: 065
  10. LOPRESSOR [Concomitant]
     Active Substance: METOPROLOL TARTRATE
     Route: 048
  11. SENOKOT-S [Concomitant]
     Active Substance: DOCUSATE SODIUM\SENNOSIDES
     Dosage: 8.6-50 MG
     Route: 065
  12. ZOCOR [Concomitant]
     Active Substance: SIMVASTATIN
     Route: 048
  13. ASPIRIN. [Concomitant]
     Active Substance: ASPIRIN
     Route: 048
  14. BENADRYL (AUSTRALIA) [Concomitant]
     Dosage: 30 MIN PRIOR TO CIPRO ANTIBIOTIC
     Route: 065
  15. PRINIVIL [Concomitant]
     Active Substance: LISINOPRIL
     Route: 048
  16. ZANTAC [Concomitant]
     Active Substance: RANITIDINE HYDROCHLORIDE
     Route: 048
  17. FLONASE (UNK INGREDIENTS) [Concomitant]
     Dosage: 50MCG/ACT,2 SPRAY BY NOSTRILS DAILY
     Route: 065
  18. ATIVAN [Concomitant]
     Active Substance: LORAZEPAM
     Indication: ANXIETY
     Dosage: 1 TABLET EVERY 8 HRS. AS NEEDED
     Route: 048
  19. ZOFRAN [Concomitant]
     Active Substance: ONDANSETRON HYDROCHLORIDE
     Indication: VOMITING
  20. MIRALAX [Concomitant]
     Active Substance: POLYETHYLENE GLYCOL 3350
     Route: 048
  21. ASTELIN (UNK INGREDIENTS) [Concomitant]
     Dosage: 2 SPRAYS INTO BOTH NOSTRIL
     Route: 045
  22. ALEVE [Concomitant]
     Active Substance: NAPROXEN SODIUM
     Indication: PAIN
     Dosage: AS NEEDED
     Route: 048

REACTIONS (3)
  - Death [Fatal]
  - Off label use [Unknown]
  - Intentional product use issue [Unknown]
